FAERS Safety Report 4451799-X (Version None)
Quarter: 2004Q3

REPORT INFORMATION
  Report Type: 
  Country: None (occurrence: None)
  Receive Date: 20040813
  Receipt Date: 20010429
  Transmission Date: 20050211
  Serious: No
  Sender: FDA-Public Use
  Company Number: S04-USA-03561-01

PATIENT
  Age: 91 Year
  Sex: Female

DRUGS (11)
  1. NAMENDA [Suspect]
     Indication: MEMORY IMPAIRMENT
     Dosage: 5 MG QD PO
     Route: 048
     Dates: start: 20040101, end: 20040101
  2. NAMENDA [Suspect]
     Indication: MEMORY IMPAIRMENT
     Dosage: 10 MG QD PO
     Route: 048
     Dates: start: 20040101, end: 20040101
  3. ARICEPT [Concomitant]
  4. PROZAC [Concomitant]
  5. NAMENDA [Suspect]
     Indication: MEMORY IMPAIRMENT
     Dosage: 15 MG QD PO
     Route: 048
     Dates: start: 20040101, end: 20040101
  6. NAMENDA [Suspect]
     Indication: MEMORY IMPAIRMENT
     Dosage: 20 MG QD PO
     Route: 048
     Dates: start: 20040101
  7. GLUCOPHAGE [Concomitant]
  8. FUROSEMIDE [Concomitant]
  9. LOVASTATIN [Concomitant]
  10. ISOSORBIDE [Concomitant]
  11. ALLOPURINOL [Concomitant]

REACTIONS (3)
  - DIZZINESS [None]
  - EYE INFECTION [None]
  - PHOTOPHOBIA [None]
